FAERS Safety Report 12333429 (Version 1)
Quarter: 2016Q2

REPORT INFORMATION
  Report Type: Spontaneous
  Country: US (occurrence: US)
  Receive Date: 20160504
  Receipt Date: 20160504
  Transmission Date: 20160815
  Serious: No
  Sender: FDA-Public Use
  Company Number: US-ROCHE-ITM201504IM013947

PATIENT
  Sex: Male
  Weight: 104.42 kg

DRUGS (3)
  1. ESBRIET [Suspect]
     Active Substance: PIRFENIDONE
     Indication: IDIOPATHIC PULMONARY FIBROSIS
     Route: 048
     Dates: start: 20150312
  2. ESBRIET [Suspect]
     Active Substance: PIRFENIDONE
     Dosage: 2 CAPSULES FOUR TIMES A DAY FOR 14 DAYS AND 1 CAPSULE AT BED TIME
     Route: 048
  3. ESBRIET [Suspect]
     Active Substance: PIRFENIDONE
     Dosage: 3 CAPSULES THRICE DAILY
     Route: 048
     Dates: start: 20150311

REACTIONS (4)
  - Photosensitivity reaction [Unknown]
  - Dyspepsia [Unknown]
  - Sunburn [Not Recovered/Not Resolved]
  - Vomiting [Unknown]
